FAERS Safety Report 13959012 (Version 1)
Quarter: 2017Q3

REPORT INFORMATION
  Report Type: Spontaneous
  Country: US (occurrence: US)
  Receive Date: 20170911
  Receipt Date: 20170911
  Transmission Date: 20171128
  Serious: Yes (Life-Threatening)
  Sender: FDA-Public Use
  Company Number: None

PATIENT
  Age: 85 Year
  Sex: Female

DRUGS (1)
  1. PERFLUTEN LIPID MICROSPHERE [Suspect]
     Active Substance: PERFLUTREN
     Indication: CARDIAC STRESS TEST

REACTIONS (5)
  - Lip swelling [None]
  - Pruritus [None]
  - Rash [None]
  - Dyspnoea [None]
  - Hypotension [None]

NARRATIVE: CASE EVENT DATE: 20170113
